FAERS Safety Report 8200089-8 (Version None)
Quarter: 2012Q1

REPORT INFORMATION
  Report Type: 
  Country: None (occurrence: None)
  Receive Date: 20120309
  Receipt Date: 20120309
  Transmission Date: 20120608
  Serious: No
  Sender: FDA-Public Use
  Company Number: None

PATIENT
  Age: 57 Year
  Sex: Female

DRUGS (1)
  1. ISONIAZID [Suspect]
     Dates: start: 20090301, end: 20090822

REACTIONS (9)
  - HEPATITIS ACUTE [None]
  - HEPATIC CIRRHOSIS [None]
  - ENCEPHALOPATHY [None]
  - URINARY TRACT INFECTION [None]
  - RASH [None]
  - ACUTE HEPATIC FAILURE [None]
  - HEPATIC STEATOSIS [None]
  - HEPATOTOXICITY [None]
  - LIVER INJURY [None]
